FAERS Safety Report 24053850 (Version 1)
Quarter: 2024Q3

REPORT INFORMATION
  Report Type: Spontaneous
  Country: US (occurrence: US)
  Receive Date: 20240705
  Receipt Date: 20240705
  Transmission Date: 20241017
  Serious: No
  Sender: GLAXOSMITHKLINE
  Company Number: US-GSKCCFUS-Case-02042191_AE-113175

PATIENT
  Sex: Female

DRUGS (2)
  1. TRELEGY ELLIPTA [Suspect]
     Active Substance: FLUTICASONE FUROATE\UMECLIDINIUM BROMIDE\VILANTEROL TRIFENATATE
     Indication: Asthma
     Dosage: 200 UG,  200/62.5/25 MCG
     Route: 055
     Dates: start: 20240601
  2. TRELEGY ELLIPTA [Suspect]
     Active Substance: FLUTICASONE FUROATE\UMECLIDINIUM BROMIDE\VILANTEROL TRIFENATATE
     Indication: Asthma
     Dosage: 100 UG, 100/62.5/25 MCG
     Dates: start: 20240613, end: 20240623

REACTIONS (4)
  - Arthralgia [Not Recovered/Not Resolved]
  - Dyspnoea [Unknown]
  - Emotional distress [Not Recovered/Not Resolved]
  - Performance status decreased [Not Recovered/Not Resolved]
